FAERS Safety Report 17391503 (Version 1)
Quarter: 2020Q1

REPORT INFORMATION
  Report Type: Spontaneous
  Country: DE (occurrence: DE)
  Receive Date: 20200207
  Receipt Date: 20200207
  Transmission Date: 20200409
  Serious: Yes (Other)
  Sender: FDA-Public Use
  Company Number: NVSC2020DE025637

PATIENT
  Age: 64 Year
  Sex: Male

DRUGS (2)
  1. LEVETIRACETAM. [Suspect]
     Active Substance: LEVETIRACETAM
     Indication: EPILEPSY
     Dosage: 500 MG, Q12H (500 MG IN THE MORNING AND EVENING)
     Route: 065
  2. TIMONIL [Interacting]
     Active Substance: CARBAMAZEPINE
     Indication: EPILEPSY
     Dosage: 500 MG, Q12H  (CONC. 100/200/400 OT, 500 MG IN THE MORNING AND EVENING)
     Route: 065

REACTIONS (5)
  - Somnolence [Unknown]
  - Gait disturbance [Unknown]
  - Toxicity to various agents [Unknown]
  - Daydreaming [Unknown]
  - Drug interaction [Unknown]
